FAERS Safety Report 12653246 (Version 1)
Quarter: 2016Q3

REPORT INFORMATION
  Report Type: Report from Study
  Country: PL (occurrence: PL)
  Receive Date: 20160815
  Receipt Date: 20160815
  Transmission Date: 20161109
  Serious: Yes (Hospitalization)
  Sender: FDA-Public Use
  Company Number: PL-TAKEDA-2016TUS014013

PATIENT
  Age: 30 Year
  Sex: Female
  Weight: 72 kg

DRUGS (5)
  1. GESTODENUM [Concomitant]
     Indication: CONTRACEPTION
     Dosage: 75 ?G, QD
     Route: 048
     Dates: start: 20160215
  2. IRON FERRIC PYROPHOSPHATE [Concomitant]
     Indication: MINERAL SUPPLEMENTATION
     Dosage: 7 MG
     Dates: start: 201510
  3. MESALAZINUM [Concomitant]
     Active Substance: MESALAMINE
     Indication: COLITIS ULCERATIVE
     Dosage: 4 G, QD
     Route: 048
     Dates: start: 201511
  4. VEDOLIZUMAB [Suspect]
     Active Substance: VEDOLIZUMAB
     Indication: COLITIS ULCERATIVE
     Dosage: 300 MG, UNK
     Route: 065
     Dates: start: 20160317
  5. ETHINYLESTRADIOLUM [Concomitant]
     Indication: CONTRACEPTION
     Dosage: 20 ?G, QD
     Route: 048
     Dates: start: 20160215

REACTIONS (1)
  - Abdominal pain [Recovered/Resolved]

NARRATIVE: CASE EVENT DATE: 20160729
